FAERS Safety Report 7047910-7 (Version None)
Quarter: 2010Q4

REPORT INFORMATION
  Report Type: 
  Country: None (occurrence: None)
  Receive Date: 20101015
  Receipt Date: 20101012
  Transmission Date: 20110411
  Serious: Yes (Hospitalization)
  Sender: FDA-Public Use
  Company Number: CH-TEVA-251344ISR

PATIENT
  Age: 19 Year
  Sex: Female
  Weight: 48 kg

DRUGS (6)
  1. PANTOPRAZOLE [Suspect]
     Route: 048
     Dates: start: 20100806, end: 20100810
  2. AMOXICILLIN AND CLAVULANATE POTASSIUM [Suspect]
     Route: 048
     Dates: start: 20100806, end: 20100809
  3. CEFUROXIME [Suspect]
     Route: 048
     Dates: start: 20100809, end: 20100814
  4. IBUPROFEN [Suspect]
     Route: 048
     Dates: start: 20100806, end: 20100810
  5. FEMODENE [Suspect]
     Route: 048
     Dates: end: 20100806
  6. PARACETAMOL [Concomitant]
     Route: 048
     Dates: start: 20100806, end: 20100810

REACTIONS (4)
  - CHOLESTATIC LIVER INJURY [None]
  - JAUNDICE [None]
  - PRURITUS [None]
  - RASH ERYTHEMATOUS [None]
